FAERS Safety Report 9798097 (Version 2)
Quarter: 2014Q1

REPORT INFORMATION
  Report Type: Spontaneous
  Country: US (occurrence: US)
  Receive Date: 20140106
  Receipt Date: 20140108
  Transmission Date: 20141002
  Serious: Yes (Hospitalization)
  Sender: FDA-Public Use
  Company Number: GB-SA-2014SA000280

PATIENT
  Age: 67 Year
  Sex: Male

DRUGS (3)
  1. ASPIRIN [Suspect]
     Indication: ANTIPLATELET THERAPY
     Route: 048
  2. CLOPIDOGREL BISULFATE [Suspect]
     Indication: ANTIPLATELET THERAPY
     Route: 048
  3. DDAVP [Suspect]
     Indication: HAEMORRHAGE
     Route: 042

REACTIONS (7)
  - Thrombosis in device [Unknown]
  - Chest pain [Unknown]
  - Haemorrhage [Unknown]
  - Shock [Unknown]
  - Acute myocardial infarction [Unknown]
  - Hypoxia [Unknown]
  - Hypotension [Unknown]
